FAERS Safety Report 18432115 (Version 1)
Quarter: 2020Q4

REPORT INFORMATION
  Report Type: Spontaneous
  Country: FR (occurrence: FR)
  Receive Date: 20201027
  Receipt Date: 20201027
  Transmission Date: 20210114
  Serious: Yes (Other)
  Sender: FDA-Public Use
  Company Number: FR-PFIZER INC-2020410500

PATIENT
  Sex: Male

DRUGS (2)
  1. LIKOZAM [Interacting]
     Active Substance: CLOBAZAM
     Dosage: UNK
  2. EPANUTIN [Suspect]
     Active Substance: PHENYTOIN SODIUM
     Dosage: UNK

REACTIONS (2)
  - Drug interaction [Unknown]
  - Epilepsy [Unknown]
